FAERS Safety Report 9952744 (Version 1)
Quarter: 2014Q1

REPORT INFORMATION
  Report Type: Report from Study
  Country: US (occurrence: US)
  Receive Date: 20140304
  Receipt Date: 20140304
  Transmission Date: 20141002
  Serious: No
  Sender: FDA-Public Use
  Company Number: US-ABBVIE-13P-163-1074551-00

PATIENT
  Age: 24 Year
  Sex: Female

DRUGS (8)
  1. HUMIRA [Suspect]
     Indication: COLITIS ULCERATIVE
     Dates: start: 20130211
  2. APRISO [Concomitant]
     Indication: COLITIS ULCERATIVE
     Dosage: 1500 MG DAILY
  3. MUCINEX D [Concomitant]
     Indication: HYPERSENSITIVITY
  4. ZYRTEC [Concomitant]
     Indication: HYPERSENSITIVITY
     Dosage: 10 MG DAILY
  5. FLOVENT [Concomitant]
     Indication: HYPERSENSITIVITY
     Dosage: EACH NOSTRIL DAILY
  6. JOLIVETTE [Concomitant]
     Indication: CONTRACEPTION
     Dosage: PILL DAILY
  7. METOPROLOL [Concomitant]
     Indication: MITRAL VALVE PROLAPSE
     Dosage: AT BEDTIME
  8. ALLERGY SHOT [Concomitant]
     Indication: PRODUCT USED FOR UNKNOWN INDICATION
     Dosage: AT PHYSICIAN^S OFFICE

REACTIONS (3)
  - Chest pain [Recovered/Resolved]
  - Chest pain [Recovered/Resolved]
  - Headache [Recovered/Resolved]
